FAERS Safety Report 8584802-6 (Version None)
Quarter: 2012Q3

REPORT INFORMATION
  Report Type: 
  Country: None (occurrence: None)
  Receive Date: 20120810
  Receipt Date: 20120801
  Transmission Date: 20120928
  Serious: Yes (Other)
  Sender: FDA-Public Use
  Company Number: US-JNJFOC-20120802372

PATIENT
  Sex: Female
  Weight: 60.33 kg

DRUGS (5)
  1. REMICADE [Suspect]
     Indication: COLITIS ULCERATIVE
     Route: 042
     Dates: start: 20110801
  2. PREDNISONE TAB [Concomitant]
     Indication: PREMEDICATION
     Route: 065
  3. LIPITOR [Concomitant]
     Indication: BLOOD CHOLESTEROL INCREASED
     Route: 048
     Dates: start: 19970101
  4. BENADRYL [Concomitant]
     Indication: PREMEDICATION
     Route: 065
  5. DIOVAN [Concomitant]
     Indication: HYPERTENSION
     Route: 065

REACTIONS (8)
  - HYPOTENSION [None]
  - MUSCULAR WEAKNESS [None]
  - PRURITUS [None]
  - ANAEMIA [None]
  - HEADACHE [None]
  - INFLUENZA LIKE ILLNESS [None]
  - COELIAC DISEASE [None]
  - INFUSION RELATED REACTION [None]
